FAERS Safety Report 8502829-7 (Version None)
Quarter: 2012Q3

REPORT INFORMATION
  Report Type: 
  Country: None (occurrence: None)
  Receive Date: 20120711
  Receipt Date: 20120709
  Transmission Date: 20120928
  Serious: Yes (Other)
  Sender: FDA-Public Use
  Company Number: US-PFIZER INC-2012164304

PATIENT
  Sex: Female
  Weight: 50 kg

DRUGS (7)
  1. LYRICA [Concomitant]
     Dosage: UNK
  2. WELLBUTRIN [Concomitant]
     Dosage: UNK
  3. CELEBREX [Suspect]
     Indication: OSTEOARTHRITIS
     Dosage: UNK, 2X/DAY
     Route: 048
     Dates: end: 20110401
  4. ASPIRIN [Concomitant]
     Dosage: UNK, 1X/DAY
  5. ESTRADIOL [Concomitant]
     Dosage: UNK
  6. LIPITOR [Concomitant]
     Dosage: UNK
  7. SEROQUEL [Concomitant]
     Dosage: UNK

REACTIONS (1)
  - URETERIC OBSTRUCTION [None]
